FAERS Safety Report 9303225 (Version 1)
Quarter: 2013Q2

REPORT INFORMATION
  Report Type: Spontaneous
  Country: US (occurrence: None)
  Receive Date: 20130521
  Receipt Date: 20130521
  Transmission Date: 20140414
  Serious: Yes (Disabling)
  Sender: FDA-Public Use
  Company Number: None

PATIENT
  Age: 58 Year
  Sex: Male

DRUGS (1)
  1. TRYPTOPHAN [Suspect]
     Route: 048
     Dates: start: 20121006, end: 20120114

REACTIONS (9)
  - Pruritus [None]
  - Amnesia [None]
  - Headache [None]
  - Abdominal pain upper [None]
  - Pain in extremity [None]
  - Mood swings [None]
  - Muscle twitching [None]
  - Vision blurred [None]
  - Arthralgia [None]
